FAERS Safety Report 5372668-7 (Version None)
Quarter: 2007Q2

REPORT INFORMATION
  Report Type: 
  Country: None (occurrence: None)
  Receive Date: 20070626
  Receipt Date: 20070612
  Transmission Date: 20071010
  Serious: Yes (Hospitalization)
  Sender: FDA-Public Use
  Company Number: 02100-JPN-07-0288

PATIENT
  Age: 68 Year
  Sex: Female

DRUGS (9)
  1. CILOSTAZOL [Suspect]
     Indication: CEREBRAL INFARCTION
     Dosage: 200 MG
     Route: 048
     Dates: end: 20070526
  2. ACARBOSE [Concomitant]
  3. AMLODIPINE BESYLATE [Concomitant]
  4. MAGNESIUM OXIDE [Concomitant]
  5. VALPROATE SODIUM [Concomitant]
  6. ENALAPRIL MALEATE [Concomitant]
  7. PRAZOSIN HCL [Concomitant]
  8. NIFEDIPINE [Concomitant]
  9. TOCOPHERYL NICOTINATE [Concomitant]

REACTIONS (7)
  - BLOOD PRESSURE DECREASED [None]
  - DEHYDRATION [None]
  - HAEMOGLOBIN DECREASED [None]
  - HAEMORRHAGE SUBCUTANEOUS [None]
  - PYREXIA [None]
  - SUBCUTANEOUS HAEMATOMA [None]
  - VOMITING [None]
